FAERS Safety Report 17371051 (Version 1)
Quarter: 2020Q1

REPORT INFORMATION
  Report Type: Report from Study
  Country: FR (occurrence: FR)
  Receive Date: 20200205
  Receipt Date: 20200205
  Transmission Date: 20200409
  Serious: Yes (Other)
  Sender: FDA-Public Use
  Company Number: FR-TAKEDA-2020TUS002574

PATIENT
  Age: 55 Year
  Sex: Male

DRUGS (1)
  1. PONATINIB [Suspect]
     Active Substance: PONATINIB
     Indication: CHRONIC MYELOID LEUKAEMIA
     Dosage: UNK
     Route: 048
     Dates: start: 20090614, end: 20101214

REACTIONS (2)
  - Peripheral vascular disorder [Unknown]
  - Vascular graft occlusion [Unknown]

NARRATIVE: CASE EVENT DATE: 20100226
